FAERS Safety Report 9847381 (Version 2)
Quarter: 2014Q2

REPORT INFORMATION
  Report Type: Spontaneous
  Country: US (occurrence: US)
  Receive Date: 20140127
  Receipt Date: 20140605
  Transmission Date: 20141212
  Serious: Yes (Hospitalization, Disabling, Other)
  Sender: FDA-Public Use
  Company Number: US-009507513-1401USA011916

PATIENT
  Sex: Female
  Weight: 97.96 kg

DRUGS (8)
  1. JANUVIA [Suspect]
     Indication: TYPE 2 DIABETES MELLITUS
     Dosage: 50 MG, DAILY
     Route: 048
     Dates: start: 20120808, end: 20121107
  2. JANUVIA [Suspect]
     Dosage: 100 MG, DAILY
     Route: 048
     Dates: start: 20121211, end: 20131207
  3. JANUMET [Suspect]
     Indication: TYPE 2 DIABETES MELLITUS
     Dosage: 50/1000 MG BID
     Route: 048
     Dates: start: 20071010, end: 20080821
  4. JANUMET [Suspect]
     Dosage: 50/1000 MG BID
     Route: 048
     Dates: start: 20090507, end: 20090707
  5. BYETTA [Suspect]
     Indication: TYPE 2 DIABETES MELLITUS
     Dosage: 5 MICROGRAM, BID
     Route: 058
     Dates: start: 20081002, end: 20090428
  6. BYETTA [Suspect]
     Dosage: 10 MICROGRAM, BID
     Route: 058
     Dates: start: 20090806, end: 20131207
  7. METFORMIN [Concomitant]
     Indication: TYPE 2 DIABETES MELLITUS
     Dosage: 1000-2000 MG, QD
     Route: 048
  8. GLUCOPHAGE [Concomitant]
     Route: 048

REACTIONS (29)
  - Adenocarcinoma pancreas [Unknown]
  - Metastases to liver [Unknown]
  - Cyst [Unknown]
  - Surgery [Unknown]
  - Pyrexia [Recovered/Resolved]
  - Anaemia [Recovering/Resolving]
  - Protein deficiency [Recovering/Resolving]
  - Dehydration [Recovering/Resolving]
  - Thrombocytopenia [Recovering/Resolving]
  - Hypomagnesaemia [Recovering/Resolving]
  - Urinary tract infection staphylococcal [Recovering/Resolving]
  - Hepatic steatosis [Unknown]
  - Liver disorder [Unknown]
  - Hepatic lesion [Unknown]
  - Diverticulum [Unknown]
  - Benign neoplasm of adrenal gland [Unknown]
  - Hypercholesterolaemia [Unknown]
  - Hypertension [Unknown]
  - Gastrooesophageal reflux disease [Unknown]
  - Hypothyroidism [Unknown]
  - Hypertensive heart disease [Unknown]
  - Peripheral swelling [Unknown]
  - Oedema [Unknown]
  - Erythema [Unknown]
  - Insomnia [Unknown]
  - Radiotherapy [Unknown]
  - Back pain [Recovering/Resolving]
  - Arthralgia [Unknown]
  - Constipation [Unknown]
